FAERS Safety Report 10307882 (Version 1)
Quarter: 2014Q3

REPORT INFORMATION
  Report Type: Spontaneous
  Country: US (occurrence: None)
  Receive Date: 20140714
  Receipt Date: 20140714
  Transmission Date: 20150326
  Serious: Yes (Hospitalization)
  Sender: FDA-Public Use
  Company Number: None

PATIENT
  Age: 32 Year
  Sex: Male

DRUGS (5)
  1. NEXIUM [Concomitant]
     Active Substance: ESOMEPRAZOLE MAGNESIUM
  2. NEURONTIN [Concomitant]
     Active Substance: GABAPENTIN
  3. SYNTHROID [Concomitant]
     Active Substance: LEVOTHYROXINE SODIUM
  4. TECFIDERA [Suspect]
     Active Substance: DIMETHYL FUMARATE
     Indication: MULTIPLE SCLEROSIS
     Dates: start: 20130415, end: 20130501
  5. XANAX [Concomitant]
     Active Substance: ALPRAZOLAM

REACTIONS (9)
  - Drug-induced liver injury [None]
  - Alanine aminotransferase increased [None]
  - Drug reaction with eosinophilia and systemic symptoms [None]
  - Pyrexia [None]
  - Aspartate aminotransferase increased [None]
  - Hepatotoxicity [None]
  - Chest discomfort [None]
  - Pain [None]
  - Hepatosplenomegaly [None]

NARRATIVE: CASE EVENT DATE: 20130502
